FAERS Safety Report 5953231-3 (Version None)
Quarter: 2008Q4

REPORT INFORMATION
  Report Type: 
  Country: None (occurrence: None)
  Receive Date: 20081114
  Receipt Date: 20081104
  Transmission Date: 20090506
  Serious: Yes (Other)
  Sender: FDA-Public Use
  Company Number: US-ROCHE-595486

PATIENT
  Sex: Female

DRUGS (6)
  1. PEG-INTERFERON A-2A (RO 25-8310) [Suspect]
     Dosage: FORM: PRE FILLED SYRINGES
     Route: 065
     Dates: start: 20080921
  2. RIBAVIRIN [Suspect]
     Route: 065
     Dates: start: 20080921
  3. LITHIUM [Concomitant]
     Dosage: PSYCH MEDICINE
  4. EFFEXOR [Concomitant]
     Dosage: PSYCH MEDICINE
  5. ZYPREXA [Concomitant]
     Dosage: PSYCH MEDICINE
  6. TOPAMAX [Concomitant]

REACTIONS (1)
  - AMMONIA INCREASED [None]
